FAERS Safety Report 24744400 (Version 2)
Quarter: 2025Q1

REPORT INFORMATION
  Report Type: Spontaneous
  Country: US (occurrence: US)
  Receive Date: 20241217
  Receipt Date: 20250205
  Transmission Date: 20250409
  Serious: No
  Sender: BIOGEN
  Company Number: US-BIOGEN-2024BI01294011

PATIENT
  Age: 43 Year
  Sex: Female

DRUGS (1)
  1. VUMERITY [Suspect]
     Active Substance: DIROXIMEL FUMARATE
     Indication: Multiple sclerosis
     Route: 050
     Dates: start: 20221116

REACTIONS (8)
  - Product dose omission issue [Unknown]
  - Back pain [Unknown]
  - Post-traumatic neck syndrome [Unknown]
  - Dysarthria [Unknown]
  - Brain fog [Unknown]
  - Wrist fracture [Unknown]
  - Road traffic accident [Recovered/Resolved]
  - Fall [Recovered/Resolved]

NARRATIVE: CASE EVENT DATE: 20241102
